FAERS Safety Report 6332803-0 (Version None)
Quarter: 2009Q3

REPORT INFORMATION
  Report Type: 
  Country: None (occurrence: None)
  Receive Date: 20090828
  Receipt Date: 20090821
  Transmission Date: 20100115
  Serious: Yes (Other)
  Sender: FDA-Public Use
  Company Number: B0590448A

PATIENT
  Age: 42 Year
  Sex: Male

DRUGS (3)
  1. BECONASE [Suspect]
     Route: 045
  2. ACIMAX [Concomitant]
     Route: 065
  3. PROPULSID [Concomitant]
     Route: 065

REACTIONS (1)
  - INFERTILITY [None]
